FAERS Safety Report 26194013 (Version 1)
Quarter: 2025Q4

REPORT INFORMATION
  Report Type: Spontaneous
  Country: HK (occurrence: HK)
  Receive Date: 20251224
  Receipt Date: 20251224
  Transmission Date: 20260117
  Serious: Yes (Death, Hospitalization, Other)
  Sender: EXELA PHARMA SCIENCES
  Company Number: HK-EXELAPHARMA-2025EXLA00224

PATIENT
  Age: 33 Year
  Sex: Male

DRUGS (4)
  1. AKOVAZ [Suspect]
     Active Substance: EPHEDRINE SULFATE
     Indication: Drug abuse
  2. PROMETHAZINE [Suspect]
     Active Substance: PROMETHAZINE HYDROCHLORIDE
     Indication: Drug abuse
  3. CODEINE [Suspect]
     Active Substance: CODEINE
     Indication: Drug abuse
  4. AMOXICILLIN [Suspect]
     Active Substance: AMOXICILLIN
     Indication: Drug abuse

REACTIONS (7)
  - Brain oedema [Fatal]
  - Loss of consciousness [Fatal]
  - Acute kidney injury [Fatal]
  - Disseminated intravascular coagulation [Fatal]
  - Rhabdomyolysis [Fatal]
  - Hyperthermia [Fatal]
  - Drug abuser [Fatal]
